FAERS Safety Report 11140432 (Version 1)
Quarter: 2015Q2

REPORT INFORMATION
  Report Type: Spontaneous
  Country: US (occurrence: US)
  Receive Date: 20150525
  Receipt Date: 20150525
  Transmission Date: 20150821
  Serious: Yes (Other)
  Sender: FDA-Public Use
  Company Number: US-JNJFOC-20140315938

PATIENT
  Age: 48 Year
  Sex: Female

DRUGS (1)
  1. RISPERDAL [Suspect]
     Active Substance: RISPERIDONE
     Indication: PRODUCT USED FOR UNKNOWN INDICATION
     Route: 065
     Dates: start: 20131211, end: 20140119

REACTIONS (13)
  - Appetite disorder [Unknown]
  - Urinary incontinence [Unknown]
  - Abdominal distension [Unknown]
  - Fatigue [Unknown]
  - Urinary tract infection [Unknown]
  - Dysphagia [Unknown]
  - Sexual dysfunction [Unknown]
  - Dyskinesia [Unknown]
  - Abdominal pain [Unknown]
  - Dyspnoea [Unknown]
  - Drooling [Unknown]
  - Diarrhoea [Unknown]
  - Nausea [Unknown]

NARRATIVE: CASE EVENT DATE: 20131220
